FAERS Safety Report 25218218 (Version 2)
Quarter: 2025Q2

REPORT INFORMATION
  Report Type: Spontaneous
  Country: US (occurrence: US)
  Receive Date: 20250421
  Receipt Date: 20250502
  Transmission Date: 20250717
  Serious: Yes (Life-Threatening, Hospitalization)
  Sender: TEVA
  Company Number: US-TEVA-VS-3322904

PATIENT
  Age: 15 Year
  Sex: Male

DRUGS (3)
  1. MEXILETINE [Suspect]
     Active Substance: MEXILETINE
     Indication: Erythromelalgia
     Route: 048
  2. KETAMINE [Suspect]
     Active Substance: KETAMINE
     Indication: Erythromelalgia
     Route: 050
  3. LIDOCAINE [Suspect]
     Active Substance: LIDOCAINE
     Indication: Erythromelalgia
     Route: 050

REACTIONS (7)
  - Toxicity to various agents [Unknown]
  - Drug ineffective [Unknown]
  - Bradycardia [Unknown]
  - Hypotension [Unknown]
  - Cardiogenic shock [Unknown]
  - Mental status changes [Unknown]
  - Hypertonia [Unknown]
